FAERS Safety Report 21539079 (Version 11)
Quarter: 2023Q4

REPORT INFORMATION
  Report Type: Spontaneous
  Country: GB (occurrence: GB)
  Receive Date: 20221102
  Receipt Date: 20231226
  Transmission Date: 20240110
  Serious: Yes (Congenital Anomaly, Other)
  Sender: FDA-Public Use
  Company Number: GB-MYLANLABS-2022M1113751

PATIENT
  Age: 6 Month
  Sex: Female
  Weight: 2.48 kg

DRUGS (17)
  1. EMTRICITABINE\TENOFOVIR [Suspect]
     Active Substance: EMTRICITABINE\TENOFOVIR
     Indication: HIV infection
     Dosage: 1 DOSAGE FORM, ONCE A DAY,1 TAB/CAPS
     Route: 064
     Dates: start: 20210719
  2. TENOFOVIR DISOPROXIL [Suspect]
     Active Substance: TENOFOVIR DISOPROXIL
     Indication: Product used for unknown indication
     Dosage: UNK
     Route: 050
  3. ATAZANAVIR [Suspect]
     Active Substance: ATAZANAVIR
     Indication: HIV infection
     Dosage: 300 MILLIGRAM, ONCE A DAY
     Route: 064
     Dates: start: 20211229
  4. COBICISTAT [Suspect]
     Active Substance: COBICISTAT
     Indication: HIV infection
     Dosage: 1 DOSAGE FORM, ONCE A DAY
     Route: 064
     Dates: end: 20210718
  5. DOLUTEGRAVIR [Suspect]
     Active Substance: DOLUTEGRAVIR
     Indication: HIV infection
     Dosage: 50 MILLIGRAM, ONCE A DAY
     Route: 064
     Dates: start: 20220125
  6. EMTRICITABINE [Suspect]
     Active Substance: EMTRICITABINE
     Indication: Product used for unknown indication
     Dosage: UNK
     Route: 050
  7. ELVITEGRAVIR [Suspect]
     Active Substance: ELVITEGRAVIR
     Indication: HIV infection
     Dosage: UNK (MATERNAL EXPOSURE DURING PREGNANCY : UNK (TABS/CAPS))
     Route: 064
     Dates: start: 20210718
  8. ISENTRESS [Suspect]
     Active Substance: RALTEGRAVIR POTASSIUM
     Indication: HIV infection
     Dosage: 800 MILLIGRAM, ONCE A DAY (MATERNAL EXPOSURE DURING PREGNANCY: 800 MILLIGRAM, QD)
     Route: 064
     Dates: start: 20210719, end: 20211228
  9. ISENTRESS [Suspect]
     Active Substance: RALTEGRAVIR POTASSIUM
     Dosage: 300 MILLIGRAM, ONCE A DAY
     Route: 064
     Dates: start: 20210719, end: 20211228
  10. EMTRICITABINE\TENOFOVIR DISOPROXIL FUMARATE [Suspect]
     Active Substance: EMTRICITABINE\TENOFOVIR DISOPROXIL FUMARATE
     Indication: Product used for unknown indication
     Dosage: 1 DOSAGE FORM, ONCE A DAY (MATERNAL EXPOSURE DURING PREGNANCY: 1 DOSAGE FORM, QD)
     Route: 064
  11. RALTEGRAVIR [Suspect]
     Active Substance: RALTEGRAVIR
     Indication: HIV infection
     Dosage: 300 MILLIGRAM, ONCE A DAY (MATERNAL EXPOSURE DURING PREGNANCY: 300MG QD)
     Route: 064
     Dates: start: 20210719, end: 20211228
  12. REYATAZ [Suspect]
     Active Substance: ATAZANAVIR SULFATE
     Indication: HIV infection
     Dosage: 300 MILLIGRAM, ONCE A DAY
     Route: 064
     Dates: start: 20211229
  13. RITONAVIR [Suspect]
     Active Substance: RITONAVIR
     Indication: HIV infection
     Dosage: 100 MILLIGRAM, ONCE A DAY
     Route: 064
     Dates: start: 20211229
  14. STRIBILD [Suspect]
     Active Substance: COBICISTAT\ELVITEGRAVIR\EMTRICITABINE\TENOFOVIR DISOPROXIL FUMARATE
     Indication: HIV infection
     Dosage: 1 DOSAGE FORM, ONCE A DAY (MATERNAL EXPOSURE DURING PREGNANCY: 1 DOSAGE FORM, QD, 1 TAB/CAPS)
     Route: 064
     Dates: end: 20210718
  15. TIVICAY [Suspect]
     Active Substance: DOLUTEGRAVIR SODIUM
     Indication: Product used for unknown indication
     Dosage: 50 MILLIGRAM, ONCE A DAY (MATERNAL EXPOSURE DURING PREGNANCY: 50 MILLIGRAM, QD)
     Route: 064
     Dates: start: 20220125
  16. ATAZANAVIR [Concomitant]
     Active Substance: ATAZANAVIR
     Indication: Product used for unknown indication
     Dosage: 300 MILLIGRAM
     Route: 064
     Dates: start: 20211229
  17. DOLUTEGRAVIR [Concomitant]
     Active Substance: DOLUTEGRAVIR
     Indication: Product used for unknown indication
     Dosage: 50 MILLIGRAM
     Route: 064
     Dates: start: 20220125

REACTIONS (6)
  - Renal dysplasia [Not Recovered/Not Resolved]
  - Single functional kidney [Not Recovered/Not Resolved]
  - Renal aplasia [Unknown]
  - Foetal exposure during pregnancy [Recovered/Resolved]
  - Low birth weight baby [Unknown]
  - Foetal exposure during delivery [Unknown]

NARRATIVE: CASE EVENT DATE: 20220221
